FAERS Safety Report 14642879 (Version 5)
Quarter: 2019Q4

REPORT INFORMATION
  Report Type: Spontaneous
  Country: DE (occurrence: DE)
  Receive Date: 20180315
  Receipt Date: 20191126
  Transmission Date: 20200122
  Serious: Yes (Hospitalization, Other)
  Sender: FDA-Public Use
  Company Number: DE-ASCEND THERAPEUTICS-2043853

PATIENT
  Age: 67 Year
  Sex: Female

DRUGS (6)
  1. BISOPROLOL (BISOPROLOL FUMURATE) [Concomitant]
     Route: 048
  2. GYNOKADIN DOSIERGEL (ESTRADIOL) (GEL) [Suspect]
     Active Substance: ESTRADIOL
     Route: 062
     Dates: start: 200701, end: 20171229
  3. UTROGEST (MICRONIZED PROGESTERONE)?INDICATIONS FOR USE: PREVENTION OF [Suspect]
     Active Substance: PROGESTERONE
     Route: 065
     Dates: start: 200701, end: 20171229
  4. HARVONI [Concomitant]
     Active Substance: LEDIPASVIR\SOFOSBUVIR
     Dates: start: 201808, end: 201811
  5. ESTROGEL [Suspect]
     Active Substance: ESTRADIOL
     Indication: HORMONE REPLACEMENT THERAPY
     Route: 062
     Dates: start: 200701, end: 20171229
  6. LEGALON (SILYBUM MARIANUM) [Concomitant]
     Route: 065

REACTIONS (10)
  - Disturbance in attention [Not Recovered/Not Resolved]
  - Muscular weakness [Not Recovered/Not Resolved]
  - Memory impairment [Not Recovered/Not Resolved]
  - Contraindicated product administered [None]
  - Endometrial thickening [Recovered/Resolved]
  - Urinary incontinence [Not Recovered/Not Resolved]
  - Hepatocellular carcinoma [Recovered/Resolved with Sequelae]
  - Product use in unapproved indication [None]
  - Gait disturbance [Not Recovered/Not Resolved]
  - Urinary incontinence [Not Recovered/Not Resolved]

NARRATIVE: CASE EVENT DATE: 2007
